FAERS Safety Report 7111124-2 (Version None)
Quarter: 2010Q4

REPORT INFORMATION
  Report Type: 
  Country: None (occurrence: None)
  Receive Date: 20101118
  Receipt Date: 20101012
  Transmission Date: 20110411
  Serious: Yes (Hospitalization)
  Sender: FDA-Public Use
  Company Number: JP-AMGEN-QUU438985

PATIENT

DRUGS (17)
  1. ENBREL [Suspect]
     Dosage: UNK UNK, UNK
     Route: 058
     Dates: start: 20060101
  2. ENBREL [Suspect]
     Dosage: 25 MG, QWK
     Route: 058
     Dates: start: 20070207, end: 20070423
  3. ENBREL [Suspect]
     Dosage: 25 MG, QWK
     Route: 058
     Dates: start: 20070604, end: 20091007
  4. ENBREL [Suspect]
     Dosage: 25 MG, QWK
     Route: 058
     Dates: start: 20100222, end: 20100305
  5. PREDNISOLONE [Suspect]
     Dosage: 5 MG, QD
     Route: 048
  6. PREDNISOLONE [Suspect]
     Route: 048
  7. PREDNISOLONE [Suspect]
     Dosage: 2 MG, QD
     Route: 048
  8. FOLIC ACID [Concomitant]
     Dosage: 5 MG, QWK
     Route: 048
  9. ACTONEL [Concomitant]
     Dosage: 17.5 MG, QWK
     Route: 048
  10. GASTER [Concomitant]
     Dosage: 40 MG, QD
     Route: 048
  11. URSO 250 [Concomitant]
     Route: 048
  12. ATELEC [Concomitant]
     Route: 048
  13. LOXONIN [Concomitant]
     Route: 048
  14. ONE-ALPHA [Concomitant]
     Route: 048
  15. GLAKAY [Concomitant]
     Route: 048
     Dates: end: 20100305
  16. RHEUMATREX [Concomitant]
     Route: 048
  17. TENORMIN [Concomitant]
     Route: 048

REACTIONS (17)
  - ABDOMINAL PAIN UPPER [None]
  - ARTHROPATHY [None]
  - CYST REMOVAL [None]
  - DEFORMITY [None]
  - EFFUSION [None]
  - FALL [None]
  - FEMORAL NECK FRACTURE [None]
  - HIP FRACTURE [None]
  - MALNUTRITION [None]
  - NAUSEA [None]
  - NECK PAIN [None]
  - POSTOPERATIVE WOUND INFECTION [None]
  - PROCALCITONIN INCREASED [None]
  - RASH [None]
  - STAPHYLOCOCCAL INFECTION [None]
  - STAPHYLOCOCCAL SEPSIS [None]
  - VOMITING [None]
